FAERS Safety Report 19588090 (Version 1)
Quarter: 2021Q3

REPORT INFORMATION
  Report Type: Spontaneous
  Country: GR (occurrence: GR)
  Receive Date: 20210721
  Receipt Date: 20210721
  Transmission Date: 20211014
  Serious: Yes (Life-Threatening, Hospitalization, Other)
  Sender: FDA-Public Use
  Company Number: GR-GLAXOSMITHKLINE-GR2021156006

PATIENT
  Sex: Female
  Weight: 2.63 kg

DRUGS (3)
  1. LEVETIRACETAM. [Suspect]
     Active Substance: LEVETIRACETAM
     Indication: EPILEPSY
     Dosage: UNK
     Route: 064
  2. BETAMETHASONE. [Concomitant]
     Active Substance: BETAMETHASONE
     Indication: PRODUCT USED FOR UNKNOWN INDICATION
     Dosage: 12 MG (1 TOTAL)
     Route: 065
  3. LAMOTRIGINE. [Suspect]
     Active Substance: LAMOTRIGINE
     Indication: EPILEPSY
     Dosage: UNK
     Route: 064

REACTIONS (6)
  - Acute respiratory distress syndrome [Recovered/Resolved]
  - Hypotonia neonatal [Recovered/Resolved]
  - Infantile apnoea [Recovered/Resolved]
  - Hydrops foetalis [Recovered/Resolved]
  - Cyanosis [Recovered/Resolved]
  - Foetal exposure during pregnancy [Recovered/Resolved]
